FAERS Safety Report 11911168 (Version 1)
Quarter: 2016Q1

REPORT INFORMATION
  Report Type: Spontaneous
  Country: US (occurrence: US)
  Receive Date: 20160112
  Receipt Date: 20160112
  Transmission Date: 20160526
  Serious: No
  Sender: FDA-Public Use
  Company Number: US-ZYDUS-009357

PATIENT
  Age: 47 Year
  Sex: Male

DRUGS (5)
  1. OXYCODONE [Suspect]
     Active Substance: OXYCODONE
     Indication: PAIN
     Dosage: EXP DATE: MAY-2016 AND MAY-2017
     Route: 048
     Dates: start: 20151012
  2. LISINOPRIL/LISINOPRIL DIHYDRATE [Concomitant]
     Indication: HYPERTENSION
  3. PREDNISONE/PREDNISONE ACETATE [Concomitant]
     Indication: RHEUMATOID ARTHRITIS
  4. METOPROLOL. [Concomitant]
     Active Substance: METOPROLOL
     Indication: HYPERTENSION
  5. ETODOLAC. [Concomitant]
     Active Substance: ETODOLAC
     Indication: RHEUMATOID ARTHRITIS

REACTIONS (3)
  - Product physical issue [Unknown]
  - Drug ineffective [Not Recovered/Not Resolved]
  - Medication residue present [Not Recovered/Not Resolved]

NARRATIVE: CASE EVENT DATE: 20151013
